FAERS Safety Report 9729498 (Version 1)
Quarter: 2013Q4

REPORT INFORMATION
  Report Type: Spontaneous
  Country: US (occurrence: US)
  Receive Date: 20131204
  Receipt Date: 20131204
  Transmission Date: 20140711
  Serious: No
  Sender: FDA-Public Use
  Company Number: US-GILEAD-2009-0021684

PATIENT
  Sex: Male

DRUGS (12)
  1. LETAIRIS [Suspect]
     Indication: PULMONARY ARTERIAL HYPERTENSION
     Dates: start: 20090201
  2. ASPIRIN [Concomitant]
  3. METOPROLOL [Concomitant]
  4. PREDNISONE [Concomitant]
  5. METHYLPREDNISOLONE [Concomitant]
  6. CALCIUM CARBONATE [Concomitant]
  7. PROMETHAZINE [Concomitant]
  8. HYDROXYZINE [Concomitant]
  9. OXYCODONE [Concomitant]
  10. MORPHINE SULFATE [Concomitant]
  11. PRILOSEC [Concomitant]
  12. AMITRIPTYLINE [Concomitant]

REACTIONS (2)
  - Nasal congestion [Not Recovered/Not Resolved]
  - Dyspnoea [Unknown]
